FAERS Safety Report 4502132-6 (Version None)
Quarter: 2004Q4

REPORT INFORMATION
  Report Type: 
  Country: None (occurrence: None)
  Receive Date: 20041116
  Receipt Date: 20041105
  Transmission Date: 20050328
  Serious: Yes (Other)
  Sender: FDA-Public Use
  Company Number: BE-BRISTOL-MYERS SQUIBB COMPANY-12759270

PATIENT

DRUGS (1)
  1. GLUCOVANCE [Suspect]

REACTIONS (1)
  - HYPOGLYCAEMIC COMA [None]
